FAERS Safety Report 15279563 (Version 1)
Quarter: 2018Q3

REPORT INFORMATION
  Report Type: Spontaneous
  Country: US (occurrence: US)
  Receive Date: 20180815
  Receipt Date: 20180815
  Transmission Date: 20181010
  Serious: No
  Sender: FDA-Public Use
  Company Number: US-PFIZER INC-2018325881

PATIENT
  Age: 35 Year
  Sex: Male
  Weight: 120.2 kg

DRUGS (5)
  1. CHANTIX [Suspect]
     Active Substance: VARENICLINE TARTRATE
     Indication: SMOKING CESSATION THERAPY
     Dosage: 0.5 MG, 1X/DAY, 0.5 MG, DAILY(0.5MG TABLET BY MOUTH EACH MORNING)
     Route: 048
  2. BUSPAR [Concomitant]
     Active Substance: BUSPIRONE HYDROCHLORIDE
     Indication: MENTAL DISORDER
     Dosage: 30 MG, 2X/DAY
     Route: 048
     Dates: start: 2018
  3. CHANTIX [Suspect]
     Active Substance: VARENICLINE TARTRATE
     Dosage: 1 MG, 2X/DAY, 2 MG, DAILY(1MG TABLET BY MOUTH ONE IN MORNING AND ONE IN THE EVENING)
     Route: 048
  4. CHANTIX [Suspect]
     Active Substance: VARENICLINE TARTRATE
     Dosage: 0.5 MG, 2X/DAY 1 MG, DAILY(0.5MG TABLET BY MOUTH IN THE MORNING AND EVENING)
     Route: 048
  5. RISPERIDONE. [Concomitant]
     Active Substance: RISPERIDONE
     Indication: MENTAL DISORDER
     Dosage: 1 SHOT EVERY TWO WEEKS IN THE ARM
     Dates: start: 2016

REACTIONS (1)
  - Drug effect incomplete [Unknown]
